FAERS Safety Report 13546885 (Version 2)
Quarter: 2017Q2

REPORT INFORMATION
  Report Type: Report from Study
  Country: IT (occurrence: IT)
  Receive Date: 20170515
  Receipt Date: 20170518
  Transmission Date: 20170830
  Serious: Yes (Hospitalization)
  Sender: FDA-Public Use
  Company Number: IT-TEVA-764815ACC

PATIENT
  Age: 51 Year
  Sex: Male

DRUGS (2)
  1. XANAX [Suspect]
     Active Substance: ALPRAZOLAM
     Indication: INTENTIONAL SELF-INJURY
     Route: 048
     Dates: start: 20170410, end: 20170410
  2. ESCITALOPRAM [Suspect]
     Active Substance: ESCITALOPRAM OXALATE
     Indication: INTENTIONAL SELF-INJURY
     Route: 048
     Dates: start: 20170410, end: 20170410

REACTIONS (4)
  - Crying [Unknown]
  - Intentional self-injury [Unknown]
  - Drug use disorder [Unknown]
  - Agitation [Unknown]

NARRATIVE: CASE EVENT DATE: 20170410
